FAERS Safety Report 6412100-5 (Version None)
Quarter: 2009Q4

REPORT INFORMATION
  Report Type: 
  Country: None (occurrence: None)
  Receive Date: 20091020
  Receipt Date: 20091007
  Transmission Date: 20100525
  Serious: Yes (Hospitalization)
  Sender: FDA-Public Use
  Company Number: 2009AC000140

PATIENT
  Age: 55 Year
  Sex: Female

DRUGS (15)
  1. DIGOXIN [Suspect]
     Dosage: PO
     Route: 048
  2. POTASSIUM CHLORIDE [Concomitant]
  3. ALDACTONE [Concomitant]
  4. METFORMIN HCL [Concomitant]
  5. COREG [Concomitant]
  6. AMARYL [Concomitant]
  7. GLUCAGON [Concomitant]
  8. NOVOLIN [Concomitant]
  9. SPIRONOLACTONE [Concomitant]
  10. GLIMEPIRIDE [Concomitant]
  11. ATACAND [Concomitant]
  12. HYDROCHLOROTHIAZIDE [Concomitant]
  13. CARVEDILOL [Concomitant]
  14. JANUVIA [Concomitant]
  15. KIONEX [Concomitant]

REACTIONS (7)
  - CARDIOACTIVE DRUG LEVEL INCREASED [None]
  - ECONOMIC PROBLEM [None]
  - HYPOVOLAEMIA [None]
  - ILL-DEFINED DISORDER [None]
  - MULTIPLE INJURIES [None]
  - RENAL FAILURE [None]
  - SURGERY [None]
